FAERS Safety Report 8955080 (Version 4)
Quarter: 2013Q1

REPORT INFORMATION
  Report Type: Report from Study
  Country: None (occurrence: US)
  Receive Date: 20121207
  Receipt Date: 20130116
  Transmission Date: 20140127
  Serious: Yes (Other)
  Sender: FDA-Public Use
  Company Number: US-ABBOTT-12P-163-1015338-00

PATIENT
  Age: 28 None
  Sex: Female
  Weight: 62.65 kg

DRUGS (3)
  1. LUPRON DEPOT [Suspect]
     Indication: ENDOMETRIOSIS
     Dosage: INITIAL START
     Route: 030
     Dates: start: 2003
  2. LUPRON DEPOT [Suspect]
     Dosage: RESTART
     Dates: start: 20121001
  3. NORETHINDRONE ACETATE [Concomitant]
     Indication: PRODUCT USED FOR UNKNOWN INDICATION
     Dosage: 5 MG DAILY

REACTIONS (17)
  - Knee operation [Unknown]
  - Knee operation [Unknown]
  - Knee operation [Unknown]
  - Cervix carcinoma [Recovered/Resolved]
  - Menstruation irregular [Unknown]
  - Metrorrhagia [Unknown]
  - Dysmenorrhoea [Unknown]
  - Dyspareunia [Unknown]
  - Mood altered [Recovered/Resolved]
  - Feeling abnormal [Unknown]
  - Smear cervix abnormal [Unknown]
  - Wrist fracture [Unknown]
  - Gestational diabetes [Recovered/Resolved]
  - Amniotic fluid volume decreased [Recovered/Resolved]
  - Nausea [Not Recovered/Not Resolved]
  - Breast tenderness [Not Recovered/Not Resolved]
  - Inappropriate schedule of drug administration [Unknown]
